FAERS Safety Report 10074529 (Version 1)
Quarter: 2014Q2

REPORT INFORMATION
  Report Type: Spontaneous
  Country: US (occurrence: US)
  Receive Date: 20140411
  Receipt Date: 20140411
  Transmission Date: 20141212
  Serious: No
  Sender: FDA-Public Use
  Company Number: US-SA-2013SA127542

PATIENT
  Age: 81 Year
  Sex: Male

DRUGS (2)
  1. ALLEGRA D [Suspect]
     Indication: RHINORRHOEA
     Dosage: TAKEN FROM- ABOUT A WEEK A AGO
     Route: 048
  2. ALLEGRA D [Suspect]
     Indication: SNEEZING
     Dosage: TAKEN FROM- ABOUT A WEEK A AGO
     Route: 048

REACTIONS (1)
  - Constipation [Not Recovered/Not Resolved]
